FAERS Safety Report 7868507-2 (Version None)
Quarter: 2011Q4

REPORT INFORMATION
  Report Type: 
  Country: None (occurrence: None)
  Receive Date: 20111028
  Receipt Date: 20101213
  Transmission Date: 20120403
  Serious: No
  Sender: FDA-Public Use
  Company Number: US-AMGEN-USASP2010008819

PATIENT
  Age: 72 Year
  Sex: Female

DRUGS (9)
  1. FOLIC ACID [Concomitant]
     Dosage: 5 MG, UNK
     Route: 048
  2. METOPROLOLTARTRAAT ACCORD [Concomitant]
     Dosage: 100 MG, UNK
     Route: 048
  3. ENBREL [Suspect]
     Dosage: 50 MG, QWK
     Route: 058
  4. EFFEXOR [Concomitant]
     Dosage: 100 MG, UNK
     Route: 048
  5. PREDNISONE [Concomitant]
     Dosage: 1 MG, UNK
     Route: 048
  6. SIMVASTATIN [Concomitant]
     Dosage: 100 MG, UNK
     Route: 048
  7. HYDROCHLOROTH [Concomitant]
     Dosage: 12.5 MG, UNK
     Route: 048
  8. METHOTREXATE [Concomitant]
     Dosage: 2.5 MG, UNK
     Route: 048
  9. PRILOSEC [Concomitant]
     Dosage: 10 MG, UNK
     Route: 048

REACTIONS (1)
  - THERAPEUTIC RESPONSE DECREASED [None]
